APPROVED DRUG PRODUCT: MIRAPEX ER
Active Ingredient: PRAMIPEXOLE DIHYDROCHLORIDE
Strength: 0.375MG
Dosage Form/Route: TABLET, EXTENDED RELEASE;ORAL
Application: N022421 | Product #001
Applicant: BOEHRINGER INGELHEIM PHARMACEUTICALS INC
Approved: Feb 19, 2010 | RLD: Yes | RS: No | Type: DISCN

PATENTS:
Patent 8679533 | Expires: Sep 8, 2029
Patent 7695734 | Expires: Apr 26, 2028